FAERS Safety Report 12477450 (Version 1)
Quarter: 2016Q2

REPORT INFORMATION
  Report Type: Report from Study
  Country: PH (occurrence: PH)
  Receive Date: 20160617
  Receipt Date: 20160617
  Transmission Date: 20160815
  Serious: Yes (Hospitalization, Other)
  Sender: FDA-Public Use
  Company Number: PH-009507513-1606PHL004407

PATIENT
  Sex: Male

DRUGS (1)
  1. VYTORIN [Suspect]
     Active Substance: EZETIMIBE\SIMVASTATIN
     Indication: BLOOD CHOLESTEROL INCREASED
     Dosage: 1 TABLET, QD
     Route: 048
     Dates: start: 2015

REACTIONS (1)
  - Thyroidectomy [Recovering/Resolving]

NARRATIVE: CASE EVENT DATE: 2015
